FAERS Safety Report 19276873 (Version 6)
Quarter: 2022Q2

REPORT INFORMATION
  Report Type: Spontaneous
  Country: US (occurrence: US)
  Receive Date: 20210519
  Receipt Date: 20220509
  Transmission Date: 20220721
  Serious: Yes (Hospitalization)
  Sender: FDA-Public Use
  Company Number: US-VIFOR (INTERNATIONAL) INC.-VIT-2021-04196

PATIENT
  Age: 53 Year
  Sex: Male

DRUGS (2)
  1. VELTASSA [Suspect]
     Active Substance: PATIROMER
     Indication: Hyperkalaemia
     Dosage: DISSOLVE CONTENTS OF 1 PACKET (8.4 GRAM) INTO 1/3 CUPS OF WATER
     Route: 048
     Dates: start: 20200410
  2. VELTASSA [Suspect]
     Active Substance: PATIROMER
     Dosage: DISSOLVE CONTENTS OF 2 PACKETS (16.8 GRAM) INTO 1/3 CUPS OF WATER
     Route: 048
     Dates: start: 202104

REACTIONS (6)
  - Blood potassium increased [Not Recovered/Not Resolved]
  - Blood pressure abnormal [Recovered/Resolved]
  - Thrombosis [Not Recovered/Not Resolved]
  - Near death experience [Not Recovered/Not Resolved]
  - Off label use [Unknown]
  - Bladder catheter replacement [Unknown]

NARRATIVE: CASE EVENT DATE: 20200410
